FAERS Safety Report 14894924 (Version 1)
Quarter: 2018Q2

REPORT INFORMATION
  Report Type: Spontaneous
  Country: DE (occurrence: DE)
  Receive Date: 20180515
  Receipt Date: 20180515
  Transmission Date: 20180711
  Serious: Yes (Other)
  Sender: FDA-Public Use
  Company Number: DE-TORRENT-00008408

PATIENT
  Sex: Male
  Weight: 3 kg

DRUGS (1)
  1. LAMOTRIGINE. [Suspect]
     Active Substance: LAMOTRIGINE
     Indication: EPILEPSY
     Dosage: 325 [MG/D ]/ DOSAGE REDUCTION TO 300MG/D
     Route: 063

REACTIONS (2)
  - Exposure via breast milk [Unknown]
  - Apnoea [Recovered/Resolved]
